FAERS Safety Report 25701527 (Version 1)
Quarter: 2025Q3

REPORT INFORMATION
  Report Type: Spontaneous
  Country: US (occurrence: US)
  Receive Date: 20250819
  Receipt Date: 20250819
  Transmission Date: 20251021
  Serious: Yes (Other)
  Sender: SANOFI AVENTIS
  Company Number: US-SA-2025SA246309

PATIENT
  Age: 37 Year
  Sex: Female
  Weight: 65.91 kg

DRUGS (3)
  1. DUPIXENT [Suspect]
     Active Substance: DUPILUMAB
     Indication: Nasal polyps
     Dosage: 300 MG, QOW
     Route: 058
     Dates: end: 202507
  2. METHIMAZOLE [Concomitant]
     Active Substance: METHIMAZOLE
  3. ACCRUFER [Concomitant]
     Active Substance: FERRIC MALTOL

REACTIONS (5)
  - Graves^ disease [Unknown]
  - Hyperthyroidism [Unknown]
  - Malaise [Unknown]
  - Discomfort [Unknown]
  - Pain [Unknown]

NARRATIVE: CASE EVENT DATE: 20250101
